FAERS Safety Report 8065506-5 (Version None)
Quarter: 2012Q1

REPORT INFORMATION
  Report Type: 
  Country: None (occurrence: None)
  Receive Date: 20120124
  Receipt Date: 20120118
  Transmission Date: 20120608
  Serious: Yes (Death)
  Sender: FDA-Public Use
  Company Number: CN-ASTELLAS-2012JP000159

PATIENT
  Sex: Male

DRUGS (6)
  1. CARBENIN [Concomitant]
     Indication: ANTI-INFECTIVE THERAPY
     Dosage: UNK
     Route: 065
     Dates: start: 20111222, end: 20120103
  2. MICAFUNGIN INJECTION [Suspect]
     Indication: INFECTION PROPHYLAXIS
     Dosage: 50 MG, UNKNOWN/D
     Route: 041
     Dates: start: 20111213, end: 20120102
  3. VANCOCIN HYDROCHLORIDE [Concomitant]
     Dosage: UNK
     Route: 065
     Dates: start: 20120103, end: 20120103
  4. TEICOPLANIN [Concomitant]
     Indication: ANTI-INFECTIVE THERAPY
     Dosage: UNK
     Route: 065
     Dates: start: 20111224, end: 20120103
  5. PIPERACILLIN AND TAZOBACTAM [Concomitant]
     Dosage: UNK
     Route: 065
     Dates: start: 20120102, end: 20120103
  6. FLUCONAZOLE [Concomitant]
     Dosage: UNK
     Route: 065
     Dates: start: 20120103, end: 20120103

REACTIONS (4)
  - CHEST DISCOMFORT [None]
  - PYREXIA [None]
  - VOMITING [None]
  - DIARRHOEA [None]
